APPROVED DRUG PRODUCT: VARENICLINE TARTRATE
Active Ingredient: VARENICLINE TARTRATE
Strength: EQ 1MG BASE
Dosage Form/Route: TABLET;ORAL
Application: A217151 | Product #002 | TE Code: AB
Applicant: KANCHAN HEALTHCARE INC
Approved: Jul 25, 2023 | RLD: No | RS: No | Type: RX